FAERS Safety Report 6733037-8 (Version None)
Quarter: 2010Q2

REPORT INFORMATION
  Report Type: 
  Country: None (occurrence: None)
  Receive Date: 20100517
  Receipt Date: 20100503
  Transmission Date: 20101027
  Serious: Yes (Life-Threatening, Hospitalization)
  Sender: FDA-Public Use
  Company Number: ES-001987

PATIENT
  Age: 61 Year
  Sex: Male

DRUGS (6)
  1. MINURIN       (MINURIN) (NOT SPECIFIED) [Suspect]
     Indication: URINARY INCONTINENCE
     Dosage: 0.1 MG/ML NASAL
     Route: 045
     Dates: start: 20080701, end: 20081017
  2. CITALOPRAM HYDROBROMIDE [Suspect]
     Indication: DRUG USE FOR UNKNOWN INDICATION
     Dosage: ORAL
     Route: 048
     Dates: start: 20000401, end: 20081017
  3. LOSARTAN POTASSIUM [Concomitant]
  4. METFORMIN [Concomitant]
  5. SIMVASTATIN [Concomitant]
  6. CLOPIDOGREL [Concomitant]

REACTIONS (3)
  - DRUG INTERACTION [None]
  - HYPONATRAEMIA [None]
  - STATUS EPILEPTICUS [None]
